FAERS Safety Report 5798595-9 (Version None)
Quarter: 2008Q3

REPORT INFORMATION
  Report Type: 
  Country: None (occurrence: None)
  Receive Date: 20080701
  Receipt Date: 20080701
  Transmission Date: 20090109
  Serious: Yes (Hospitalization)
  Sender: FDA-Public Use
  Company Number: None

PATIENT
  Age: 63 Year
  Sex: Male

DRUGS (1)
  1. KETOROLAC TROMETHAMINE [Suspect]
     Indication: BACK PAIN
     Dosage: 30 MG ONCE IV
     Route: 042
     Dates: start: 20080616, end: 20080616

REACTIONS (1)
  - RESPIRATORY DISTRESS [None]
